FAERS Safety Report 8002522-3 (Version None)
Quarter: 2011Q4

REPORT INFORMATION
  Report Type: 
  Country: None (occurrence: None)
  Receive Date: 20111220
  Receipt Date: 20111209
  Transmission Date: 20120403
  Serious: Yes (Hospitalization)
  Sender: FDA-Public Use
  Company Number: AUR-APL-2011-06162

PATIENT
  Age: 62 Year
  Sex: Female
  Weight: 66.44 kg

DRUGS (8)
  1. CO-Q-10 (UBIDECARENONE) [Concomitant]
  2. FRAGMIN [Concomitant]
  3. MULTIVITAMIN (MULTIVITAMIN /00831701/) [Concomitant]
  4. LISINOPRIL [Suspect]
     Indication: HYPERTENSION
     Dosage: 30 MG (30 MG, 1 IN 1 D), ORAL
     Route: 048
     Dates: start: 20050101
  5. HYDROCHLOROTHIAZIDE [Suspect]
     Indication: HYPERTENSION
     Dosage: 12.5 MG (12.5 MG,1 IN 1 D), ORAL
     Route: 048
     Dates: start: 19980101
  6. GREEN TEA EXTRACT (CAMELLIA SINENSIS) [Concomitant]
  7. PF-04449913 [Suspect]
     Indication: METASTATIC GASTRIC CANCER
     Dosage: 640 MG (640 MG, 1 IN 1 D), ORAL
     Route: 048
     Dates: start: 20111114, end: 20111122
  8. VITAMIN D [Concomitant]

REACTIONS (7)
  - RENAL FAILURE ACUTE [None]
  - ILEUS [None]
  - NAUSEA [None]
  - ABDOMINAL PAIN [None]
  - AZOTAEMIA [None]
  - VOMITING [None]
  - CONSTIPATION [None]
